FAERS Safety Report 14204957 (Version 1)
Quarter: 2017Q4

REPORT INFORMATION
  Report Type: Spontaneous
  Country: US (occurrence: US)
  Receive Date: 20171119
  Receipt Date: 20171119
  Transmission Date: 20180321
  Serious: Yes (Disabling)
  Sender: FDA-Public Use
  Company Number: None

PATIENT
  Sex: Female
  Weight: 92.7 kg

DRUGS (9)
  1. M3-MIRACLE MOLECULE MAX [Concomitant]
  2. DICLOFENAC POT. [Concomitant]
  3. ESTRADIOL. [Concomitant]
     Active Substance: ESTRADIOL
  4. VITAMIN C [Concomitant]
     Active Substance: ASCORBIC ACID
  5. LEVOFLOXACIN. [Suspect]
     Active Substance: LEVOFLOXACIN
     Indication: SINUSITIS
     Dosage: ?          QUANTITY:14 TABLET(S);?
     Route: 048
     Dates: start: 20171106, end: 20171107
  6. PANTOPRAZOLE [Concomitant]
     Active Substance: PANTOPRAZOLE
  7. PROGESTERONE. [Concomitant]
     Active Substance: PROGESTERONE
  8. TESTOSTERONE OIL [Concomitant]
  9. NATURE-THROID [Concomitant]
     Active Substance: THYROID, PORCINE

REACTIONS (1)
  - Hypoaesthesia [None]

NARRATIVE: CASE EVENT DATE: 20171106
